FAERS Safety Report 5625292-2 (Version None)
Quarter: 2008Q1

REPORT INFORMATION
  Report Type: 
  Country: None (occurrence: None)
  Receive Date: 20080213
  Receipt Date: 20080206
  Transmission Date: 20080703
  Serious: Yes (Disabling)
  Sender: FDA-Public Use
  Company Number: PHBS2007IT11614

PATIENT
  Age: 72 Year
  Sex: Male

DRUGS (3)
  1. ZOMETA [Suspect]
     Indication: METASTASES TO BONE
     Dosage: 4 MG/MONTH
     Route: 042
     Dates: start: 20060301
  2. CASODEX [Concomitant]
     Route: 048
  3. IBUSTRIN [Concomitant]
     Route: 048

REACTIONS (1)
  - OSTEONECROSIS [None]
